FAERS Safety Report 16863191 (Version 1)
Quarter: 2019Q3

REPORT INFORMATION
  Report Type: Other
  Country: CZ (occurrence: CZ)
  Receive Date: 20190927
  Receipt Date: 20190927
  Transmission Date: 20191005
  Serious: Yes (Other)
  Sender: FDA-Public Use
  Company Number: CZ-EMD SERONO-9118103

PATIENT
  Age: 45 Year
  Sex: Male

DRUGS (1)
  1. INTERFERON BETA-1A [Suspect]
     Active Substance: INTERFERON BETA-1A
     Indication: MULTIPLE SCLEROSIS
     Dates: start: 201207

REACTIONS (4)
  - Neurogenic bladder [Recovered/Resolved]
  - Hypertonic bladder [Recovered/Resolved]
  - Back pain [Recovered/Resolved]
  - Quality of life decreased [Unknown]

NARRATIVE: CASE EVENT DATE: 2017
